FAERS Safety Report 18928378 (Version 1)
Quarter: 2021Q1

REPORT INFORMATION
  Report Type: Spontaneous
  Country: CA (occurrence: CA)
  Receive Date: 20210223
  Receipt Date: 20210223
  Transmission Date: 20210420
  Serious: Yes (Other)
  Sender: FDA-Public Use
  Company Number: CA-FRESENIUS KABI-FK202101575

PATIENT
  Age: 11 Year
  Sex: Male

DRUGS (1)
  1. ETOPOSIDE (MANUFACTURER UNKNOWN) [Suspect]
     Active Substance: ETOPOSIDE
     Indication: PRODUCT USED FOR UNKNOWN INDICATION
     Dosage: ETOPOSIDE INJECTION
     Route: 065

REACTIONS (2)
  - Throat irritation [Recovered/Resolved]
  - Cough [Recovered/Resolved]
